FAERS Safety Report 9148979 (Version 4)
Quarter: 2013Q2

REPORT INFORMATION
  Report Type: Report from Study
  Country: US (occurrence: US)
  Receive Date: 20130308
  Receipt Date: 20130508
  Transmission Date: 20140414
  Serious: Yes (Hospitalization, Other)
  Sender: FDA-Public Use
  Company Number: US-ABBOTT-13P-163-1052657-00

PATIENT
  Age: 68 Year
  Sex: Male

DRUGS (27)
  1. HUMIRA [Suspect]
     Indication: CROHN^S DISEASE
     Dates: start: 20121206
  2. HUMIRA [Suspect]
  3. HYDROMORPHONE [Suspect]
     Indication: PAIN
     Dates: start: 20130212
  4. ALLOPURINOL [Concomitant]
     Indication: PRODUCT USED FOR UNKNOWN INDICATION
     Dosage: AT BEDTIME
  5. ASPIRIN [Concomitant]
     Indication: PRODUCT USED FOR UNKNOWN INDICATION
     Dosage: 81 MG EVERY DAY, ON HOLD 2 DAYS NOW
  6. AVADART [Concomitant]
     Indication: PRODUCT USED FOR UNKNOWN INDICATION
     Dosage: AT BEDTIME
  7. COREG [Concomitant]
     Indication: PRODUCT USED FOR UNKNOWN INDICATION
  8. DIOVAN [Concomitant]
     Indication: PRODUCT USED FOR UNKNOWN INDICATION
     Dosage: 80 MG EVERYDAY
  9. FLOMAX [Concomitant]
     Indication: PRODUCT USED FOR UNKNOWN INDICATION
     Dosage: 60 MG 2 IN 1 DAY MON, WED, FRI; EVERY SUN, TUE, THU
  10. METOLAZONE [Concomitant]
     Indication: PRODUCT USED FOR UNKNOWN INDICATION
     Dosage: 5 MG EVERY MON, WED, FRI
  11. MAG OXIDE [Concomitant]
     Indication: PRODUCT USED FOR UNKNOWN INDICATION
  12. NITROGLYCERIN [Concomitant]
     Indication: CHEST PAIN
  13. OCUVITE VITAMINS [Concomitant]
     Indication: PRODUCT USED FOR UNKNOWN INDICATION
     Dosage: EVERY DAY
  14. PENTASA [Concomitant]
     Indication: PRODUCT USED FOR UNKNOWN INDICATION
  15. WARFARIN [Concomitant]
     Indication: PRODUCT USED FOR UNKNOWN INDICATION
     Dosage: 5 MG EVERY DAY; ON HOLD NOW X2 DAYS
  16. PRO-AIR [Concomitant]
     Indication: PRODUCT USED FOR UNKNOWN INDICATION
     Dosage: 2 PUFFS EVERY 4 HOURS AS REQUIRED
  17. SPIRIVA [Concomitant]
     Indication: PRODUCT USED FOR UNKNOWN INDICATION
  18. SYMBICORT [Concomitant]
     Indication: PRODUCT USED FOR UNKNOWN INDICATION
     Dosage: 2 PUFFS EVERY 12 HOURS
  19. OXYGEN [Concomitant]
     Indication: PRODUCT USED FOR UNKNOWN INDICATION
     Dosage: AT BEDTIME, AS NEEDED
  20. LANTUS [Concomitant]
     Indication: PRODUCT USED FOR UNKNOWN INDICATION
     Dosage: AT BEDTIME
  21. TYLENOL [Concomitant]
     Indication: PAIN
  22. GABAPENTIN [Concomitant]
     Indication: NEURALGIA
  23. REGLAN [Concomitant]
     Indication: NAUSEA
     Dosage: 2 BEFORE MEALS
  24. CARAFATE [Concomitant]
     Indication: ULCER
     Dosage: BEFORE MEALS AND AT BEDTIME
  25. VITAMIN D [Concomitant]
     Indication: PRODUCT USED FOR UNKNOWN INDICATION
     Dosage: MON, WED, FRI, FOR 8 WEEKS
  26. POTASSIUM [Concomitant]
     Indication: PRODUCT USED FOR UNKNOWN INDICATION
  27. LASIX [Concomitant]
     Indication: PRODUCT USED FOR UNKNOWN INDICATION
     Dosage: 60 MG DAILY, EXCEPT ON WEDNESDAYS- TAKE 2

REACTIONS (19)
  - Fall [Unknown]
  - Fall [Unknown]
  - Tremor [Recovering/Resolving]
  - Crohn^s disease [Recovering/Resolving]
  - Pain in extremity [Recovering/Resolving]
  - Spondylitis [Unknown]
  - Local swelling [Unknown]
  - Blister [Unknown]
  - Gastrointestinal haemorrhage [Unknown]
  - Pain in extremity [Recovering/Resolving]
  - Nausea [Unknown]
  - Tremor [Not Recovered/Not Resolved]
  - Pyrexia [Not Recovered/Not Resolved]
  - Pneumonia [Not Recovered/Not Resolved]
  - Localised infection [Not Recovered/Not Resolved]
  - Haemorrhage [Recovered/Resolved]
  - Asthenia [Not Recovered/Not Resolved]
  - Asthenia [Recovering/Resolving]
  - Red blood cell count decreased [Recovered/Resolved]
